FAERS Safety Report 6782749-9 (Version None)
Quarter: 2010Q2

REPORT INFORMATION
  Report Type: 
  Country: None (occurrence: None)
  Receive Date: 20100621
  Receipt Date: 20100610
  Transmission Date: 20101027
  Serious: Yes (Other)
  Sender: FDA-Public Use
  Company Number: DK-GENENTECH-301723

PATIENT
  Sex: Female
  Weight: 64.5 kg

DRUGS (3)
  1. RITUXIMAB [Suspect]
     Indication: IDIOPATHIC THROMBOCYTOPENIC PURPURA
     Dosage: 638 MG, 1/WEEK
     Route: 042
     Dates: start: 20100416, end: 20100428
  2. DEXAMETHASONE TAB [Suspect]
     Indication: IDIOPATHIC THROMBOCYTOPENIC PURPURA
     Dosage: 40 MG, UNK
     Route: 048
     Dates: start: 20100415
  3. VAGIFEM [Concomitant]
     Indication: DRUG USE FOR UNKNOWN INDICATION
     Dosage: UNK

REACTIONS (1)
  - ALANINE AMINOTRANSFERASE INCREASED [None]
